FAERS Safety Report 14168001 (Version 1)
Quarter: 2017Q4

REPORT INFORMATION
  Report Type: Report from Study
  Country: CN (occurrence: CN)
  Receive Date: 20171108
  Receipt Date: 20171108
  Transmission Date: 20180321
  Serious: Yes (Other)
  Sender: FDA-Public Use
  Company Number: CN-CIPLA LTD.-2017CN19602

PATIENT

DRUGS (5)
  1. LOBAPLATIN [Suspect]
     Active Substance: LOBAPLATIN
     Indication: HEPATOCELLULAR CARCINOMA
     Dosage: 50 MG, UNK
     Route: 065
  2. EPIRUBICIN [Suspect]
     Active Substance: EPIRUBICIN
     Indication: HEPATOCELLULAR CARCINOMA
     Dosage: 50 MG, UNK
     Route: 065
  3. POLYVINYL ALCOHOL [Suspect]
     Active Substance: POLYVINYL ALCOHOL
     Indication: HEPATOCELLULAR CARCINOMA
     Dosage: UNK
     Route: 065
  4. MITOMYCIN. [Suspect]
     Active Substance: MITOMYCIN
     Indication: HEPATOCELLULAR CARCINOMA
     Dosage: 6 MG, UNK
     Route: 065
  5. LIPIODOL [Suspect]
     Active Substance: ETHIODIZED OIL
     Indication: HEPATOCELLULAR CARCINOMA
     Dosage: UNK
     Route: 065

REACTIONS (1)
  - Neoplasm progression [Unknown]
